FAERS Safety Report 8175433-0 (Version None)
Quarter: 2012Q1

REPORT INFORMATION
  Report Type: 
  Country: None (occurrence: None)
  Receive Date: 20120229
  Receipt Date: 20120220
  Transmission Date: 20120608
  Serious: Yes (Hospitalization)
  Sender: FDA-Public Use
  Company Number: FR-ASTRAZENECA-2012SE12534

PATIENT
  Age: 21202 Day
  Sex: Female

DRUGS (11)
  1. QUETIAPINE FUMARATE [Suspect]
     Route: 048
     Dates: start: 20111225, end: 20120110
  2. QUETIAPINE FUMARATE [Suspect]
     Route: 048
     Dates: start: 20120117, end: 20120123
  3. AMLODIPINE BESYLATE [Concomitant]
     Indication: HYPERTENSION
     Route: 048
  4. RISPERDAL [Suspect]
     Route: 048
     Dates: end: 20120123
  5. IRBESARTAN [Concomitant]
     Indication: HYPERTENSION
     Route: 048
  6. QUETIAPINE FUMARATE [Suspect]
     Route: 048
     Dates: start: 20111222, end: 20111224
  7. ESCITALOPRAM OXALATE [Suspect]
     Route: 048
     Dates: start: 20111222, end: 20120123
  8. VALIUM [Suspect]
     Route: 048
     Dates: end: 20120123
  9. BISOPROLOL FUMARATE [Concomitant]
     Indication: HYPERTENSION
     Route: 048
  10. ESIDRIX [Concomitant]
     Indication: HYPERTENSION
     Route: 048
  11. QUETIAPINE FUMARATE [Suspect]
     Route: 048
     Dates: start: 20120111, end: 20120116

REACTIONS (3)
  - BALANCE DISORDER [None]
  - SOMNOLENCE [None]
  - CONFUSIONAL STATE [None]
